FAERS Safety Report 9485714 (Version 1)
Quarter: 2013Q3

REPORT INFORMATION
  Report Type: Spontaneous
  Country: US (occurrence: None)
  Receive Date: 20130827
  Receipt Date: 20130827
  Transmission Date: 20140515
  Serious: No
  Sender: FDA-Public Use
  Company Number: None

PATIENT
  Age: 29 Year
  Sex: Male
  Weight: 58 kg

DRUGS (1)
  1. DILAUDID [Suspect]
     Dosage: X1 DOSE
     Route: 042
     Dates: start: 20130605

REACTIONS (2)
  - Rash [None]
  - Rash [None]
